FAERS Safety Report 11806981 (Version 1)
Quarter: 2015Q4

REPORT INFORMATION
  Report Type: Spontaneous
  Country: US (occurrence: US)
  Receive Date: 20151207
  Receipt Date: 20151207
  Transmission Date: 20160305
  Serious: No
  Sender: FDA-Public Use
  Company Number: US-ENDO PHARMACEUTICALS INC.-2015-002248

PATIENT
  Sex: Male
  Weight: 74.91 kg

DRUGS (3)
  1. TESTIM [Suspect]
     Active Substance: TESTOSTERONE
     Indication: BLOOD TESTOSTERONE DECREASED
     Dosage: 1.5 TUBES DAILY
     Route: 062
     Dates: start: 20150728
  2. TESTIM [Suspect]
     Active Substance: TESTOSTERONE
     Dosage: 1.5 TUBES DAILY
     Route: 062
     Dates: start: 2005
  3. TESTIM [Suspect]
     Active Substance: TESTOSTERONE
     Dosage: 1.5 TUBES DAILY
     Route: 062
     Dates: start: 201504, end: 20150723

REACTIONS (10)
  - Nausea [Not Recovered/Not Resolved]
  - Intentional product use issue [Not Recovered/Not Resolved]
  - Skin tightness [Not Recovered/Not Resolved]
  - Muscle twitching [Not Recovered/Not Resolved]
  - Malaise [Not Recovered/Not Resolved]
  - Dysgeusia [Not Recovered/Not Resolved]
  - Abdominal discomfort [Not Recovered/Not Resolved]
  - Dysphonia [Not Recovered/Not Resolved]
  - Skin odour abnormal [Not Recovered/Not Resolved]
  - Paraesthesia [Not Recovered/Not Resolved]

NARRATIVE: CASE EVENT DATE: 2005
